FAERS Safety Report 19880342 (Version 1)
Quarter: 2021Q3

REPORT INFORMATION
  Report Type: Spontaneous
  Country: US (occurrence: US)
  Receive Date: 20210925
  Receipt Date: 20210925
  Transmission Date: 20211014
  Serious: Yes (Death, Other)
  Sender: FDA-Public Use
  Company Number: US-SHILPA MEDICARE LIMITED-SML-US-2021-01116

PATIENT
  Age: 59 Year
  Sex: Female

DRUGS (2)
  1. AZACITIDINE, UNKNOWN [Suspect]
     Active Substance: AZACITIDINE
     Indication: DIFFUSE LARGE B-CELL LYMPHOMA
     Route: 065
     Dates: start: 202005
  2. MAGROLIMAB [Suspect]
     Active Substance: MAGROLIMAB
     Indication: DIFFUSE LARGE B-CELL LYMPHOMA
     Dates: start: 202005

REACTIONS (2)
  - Acute erythroid leukaemia [Unknown]
  - Treatment failure [Unknown]

NARRATIVE: CASE EVENT DATE: 2020
